FAERS Safety Report 8507261-8 (Version None)
Quarter: 2012Q3

REPORT INFORMATION
  Report Type: 
  Country: None (occurrence: None)
  Receive Date: 20120712
  Receipt Date: 20120709
  Transmission Date: 20120928
  Serious: Yes (Hospitalization, Other)
  Sender: FDA-Public Use
  Company Number: DE-ROCHE-1076775

PATIENT
  Age: 89 Year
  Sex: Female

DRUGS (3)
  1. LUCENTIS [Suspect]
     Indication: PRODUCT USED FOR UNKNOWN INDICATION
     Route: 050
     Dates: start: 20120516
  2. DEKRISTOL [Concomitant]
  3. METHIMAZOLE [Concomitant]

REACTIONS (8)
  - PRURITUS [None]
  - URINARY TRACT INFECTION [None]
  - DYSURIA [None]
  - LIVER INJURY [None]
  - JAUNDICE [None]
  - FAECES DISCOLOURED [None]
  - WEIGHT DECREASED [None]
  - ABDOMINAL PAIN LOWER [None]
